FAERS Safety Report 11242489 (Version 1)
Quarter: 2015Q3

REPORT INFORMATION
  Report Type: Report from Study
  Country: US (occurrence: US)
  Receive Date: 20150707
  Receipt Date: 20150707
  Transmission Date: 20151125
  Serious: Yes (Other)
  Sender: FDA-Public Use
  Company Number: US-ROCHE-ITM201506IM017505

PATIENT
  Age: 69 Year
  Sex: Male

DRUGS (4)
  1. PIRFENIDONE [Suspect]
     Active Substance: PIRFENIDONE
     Indication: IDIOPATHIC PULMONARY FIBROSIS
     Dosage: 9 CAPSULES
     Route: 048
     Dates: start: 201410
  2. BENADRYL [Concomitant]
     Active Substance: DIPHENHYDRAMINE HYDROCHLORIDE
  3. BETAMETHASONE. [Concomitant]
     Active Substance: BETAMETHASONE
     Route: 065
  4. PIRFENIDONE [Suspect]
     Active Substance: PIRFENIDONE
     Dosage: 3 PILLS
     Route: 048
     Dates: start: 201409, end: 20150622

REACTIONS (4)
  - Pruritus [Recovering/Resolving]
  - Gastric disorder [Unknown]
  - Skin lesion [Recovering/Resolving]
  - Rash [Recovering/Resolving]

NARRATIVE: CASE EVENT DATE: 201505
